FAERS Safety Report 6616194-3 (Version None)
Quarter: 2010Q1

REPORT INFORMATION
  Report Type: 
  Country: None (occurrence: None)
  Receive Date: 20100305
  Receipt Date: 20100224
  Transmission Date: 20100710
  Serious: Yes (Death, Hospitalization)
  Sender: FDA-Public Use
  Company Number: PHEH2010US02492

PATIENT
  Sex: Male

DRUGS (1)
  1. TASIGNA [Suspect]
     Indication: GASTROINTESTINAL STROMAL TUMOUR
     Dosage: 400 MG, BID
     Route: 048
     Dates: start: 20091001

REACTIONS (12)
  - CACHEXIA [None]
  - GASTROINTESTINAL STROMAL TUMOUR [None]
  - IMPAIRED HEALING [None]
  - LOCALISED OEDEMA [None]
  - MALIGNANT NEOPLASM PROGRESSION [None]
  - NECK PAIN [None]
  - OEDEMA [None]
  - OEDEMA PERIPHERAL [None]
  - OPEN WOUND [None]
  - REFUSAL OF TREATMENT BY PATIENT [None]
  - RESPIRATORY FAILURE [None]
  - TERMINAL STATE [None]
